FAERS Safety Report 7252307-0 (Version None)
Quarter: 2011Q1

REPORT INFORMATION
  Report Type: 
  Country: None (occurrence: None)
  Receive Date: 20110129
  Receipt Date: 20100106
  Transmission Date: 20110831
  Serious: No
  Sender: FDA-Public Use
  Company Number: US-ABBOTT-10P-163-0618678-00

PATIENT
  Age: 44 Year
  Sex: Male

DRUGS (3)
  1. CLOBETASOL [Concomitant]
     Indication: PSORIASIS
  2. ISONIAZID [Concomitant]
     Indication: TUBERCULIN TEST POSITIVE
  3. HUMIRA [Suspect]
     Indication: PSORIASIS

REACTIONS (1)
  - INJECTION SITE ERYTHEMA [None]
